FAERS Safety Report 6199377-9 (Version None)
Quarter: 2009Q2

REPORT INFORMATION
  Report Type: 
  Country: None (occurrence: None)
  Receive Date: 20090522
  Receipt Date: 20090511
  Transmission Date: 20091009
  Serious: Yes (Hospitalization)
  Sender: FDA-Public Use
  Company Number: ES-ELI_LILLY_AND_COMPANY-ES200905002427

PATIENT
  Sex: Female

DRUGS (1)
  1. FORTEO [Suspect]
     Indication: OSTEOPOROSIS
     Dosage: 20 UG, UNK
     Route: 058
     Dates: start: 20090301, end: 20090501

REACTIONS (5)
  - ABDOMINAL DISTENSION [None]
  - BLOOD GLUCOSE ABNORMAL [None]
  - JOINT SWELLING [None]
  - PYREXIA [None]
  - URINARY TRACT INFECTION [None]
